FAERS Safety Report 8248268-8 (Version None)
Quarter: 2012Q1

REPORT INFORMATION
  Report Type: 
  Country: None (occurrence: None)
  Receive Date: 20120330
  Receipt Date: 20120322
  Transmission Date: 20120608
  Serious: Yes (Death)
  Sender: FDA-Public Use
  Company Number: US-CELGENEUS-163-21880-11100290

PATIENT
  Sex: Female

DRUGS (20)
  1. POTASSIUM [Concomitant]
     Route: 065
  2. NIASPAN [Concomitant]
     Route: 065
  3. NITROGLYCERIN [Concomitant]
     Route: 065
  4. LASIX [Concomitant]
     Route: 065
  5. ANTIVERT [Concomitant]
     Route: 065
  6. FISH OIL [Concomitant]
     Route: 065
  7. COUMADIN [Concomitant]
     Route: 065
  8. SYNTHROID [Concomitant]
     Route: 065
  9. LORTAB [Concomitant]
     Route: 065
  10. REVLIMID [Suspect]
     Dosage: 10 MILLIGRAM
     Route: 048
     Dates: start: 20110801, end: 20110901
  11. LEVSIN [Concomitant]
     Route: 065
  12. PRAVACHOL [Concomitant]
     Route: 065
  13. ULONIC [Concomitant]
     Route: 065
  14. ASPIRIN [Concomitant]
     Route: 065
  15. LUNESTA [Concomitant]
     Route: 065
  16. TOPROL-XL [Concomitant]
     Route: 065
  17. PROTONIX [Concomitant]
     Route: 065
  18. PREMARIN [Concomitant]
     Route: 065
  19. REVLIMID [Suspect]
     Indication: MULTIPLE MYELOMA
     Dosage: 25 MILLIGRAM
     Route: 048
     Dates: start: 20110801
  20. XANAX [Concomitant]
     Route: 065

REACTIONS (1)
  - RENAL FAILURE [None]
